FAERS Safety Report 7778158-6 (Version None)
Quarter: 2011Q3

REPORT INFORMATION
  Report Type: 
  Country: None (occurrence: None)
  Receive Date: 20110922
  Receipt Date: 20110830
  Transmission Date: 20111222
  Serious: Yes (Hospitalization, Other)
  Sender: FDA-Public Use
  Company Number: JPI-P-001172

PATIENT
  Age: 63 Year
  Sex: Male
  Weight: 75 kg

DRUGS (8)
  1. CLOMIPRAMINE HYDROCHLORIDE [Concomitant]
  2. XYREM [Suspect]
     Indication: CATAPLEXY
     Dosage: SEE IMAGE
     Route: 048
     Dates: start: 20070101
  3. XYREM [Suspect]
     Indication: CATAPLEXY
     Dosage: SEE IMAGE
     Route: 048
     Dates: start: 20070306, end: 20070315
  4. XYREM [Suspect]
     Indication: CATAPLEXY
     Dosage: SEE IMAGE
     Route: 048
     Dates: start: 20070316, end: 20071025
  5. XYREM [Suspect]
     Indication: CATAPLEXY
     Dosage: SEE IMAGE
     Route: 048
     Dates: start: 20071026, end: 20070101
  6. XYREM [Suspect]
     Indication: CATAPLEXY
     Dosage: SEE IMAGE
     Route: 048
     Dates: start: 20070218, end: 20070305
  7. MODAFINIL [Concomitant]
  8. IMIPRAMINE HYDROCHLORIDE [Concomitant]

REACTIONS (15)
  - FUNGAL INFECTION [None]
  - SLEEP PARALYSIS [None]
  - MYOCARDIAL INFARCTION [None]
  - PAIN [None]
  - DRUG ADMINISTRATION ERROR [None]
  - PHLEBITIS [None]
  - HYPERHIDROSIS [None]
  - ENURESIS [None]
  - BACK PAIN [None]
  - HYPERCHOLESTEROLAEMIA [None]
  - DRY MOUTH [None]
  - ABNORMAL DREAMS [None]
  - DYSPNOEA [None]
  - NECROSIS [None]
  - CATAPLEXY [None]
